FAERS Safety Report 6125508 (Version 5)
Quarter: 2014Q2

REPORT INFORMATION
  Report Type: Spontaneous
  Country: CA (occurrence: None)
  Receive Date: 20060828
  Receipt Date: 20140514
  Transmission Date: 20141212
  Serious: Yes (Hospitalization)
  Sender: FDA-Public Use
  Company Number: 2006-02158

PATIENT
  Age: 61 Year
  Sex: Female
  Weight: 209 kg

DRUGS (2)
  1. VELCADE [Suspect]
     Indication: PLASMA CELL MYELOMA
     Route: 042
     Dates: start: 20060626, end: 20060807
  2. DOXIL [Suspect]
     Indication: PLASMA CELL MYELOMA
     Route: 042
     Dates: start: 20060629, end: 20060810

REACTIONS (4)
  - Palmar-plantar erythrodysaesthesia syndrome [None]
  - Wound secretion [None]
  - Malaise [None]
  - Nausea [None]
